FAERS Safety Report 9121118 (Version 1)
Quarter: 2013Q1

REPORT INFORMATION
  Report Type: Spontaneous
  Country: JP (occurrence: JP)
  Receive Date: 20130226
  Receipt Date: 20130226
  Transmission Date: 20140127
  Serious: Yes (Death, Hospitalization)
  Sender: FDA-Public Use
  Company Number: JP-ROCHE-1044073

PATIENT
  Age: 59 Year
  Sex: Male

DRUGS (2)
  1. XELODA [Suspect]
     Indication: METASTATIC GASTRIC CANCER
     Dosage: IT IS ONE ADMINISTERING WEEKLY HOLIDAY MEDICINE FOR TWO WEEKS.
     Route: 048
  2. CISPLATIN [Suspect]
     Indication: METASTATIC GASTRIC CANCER
     Dosage: DOSAGE IS UNCERTAIN
     Route: 041

REACTIONS (5)
  - Metastatic gastric cancer [Fatal]
  - Decreased appetite [Unknown]
  - Fatigue [Unknown]
  - White blood cell count decreased [Unknown]
  - Neutrophil count decreased [Unknown]
